FAERS Safety Report 8556739-X (Version None)
Quarter: 2012Q3

REPORT INFORMATION
  Report Type: 
  Country: None (occurrence: None)
  Receive Date: 20120719
  Receipt Date: 20120704
  Transmission Date: 20120928
  Serious: Yes (Life-Threatening, Hospitalization, Other)
  Sender: FDA-Public Use
  Company Number: THQ2032A05975

PATIENT
  Age: 76 Year
  Sex: Female

DRUGS (1)
  1. ACTOS [Suspect]
     Dosage: 30 MG (30 MG, 1 IN 1 D) PER ORAL
     Route: 048
     Dates: end: 20120301

REACTIONS (1)
  - CORONARY ARTERY OCCLUSION [None]
